FAERS Safety Report 10422695 (Version 4)
Quarter: 2014Q4

REPORT INFORMATION
  Report Type: Spontaneous
  Country: US (occurrence: US)
  Receive Date: 20140902
  Receipt Date: 20141003
  Transmission Date: 20150528
  Serious: Yes (Death, Other)
  Sender: FDA-Public Use
  Company Number: US-009507513-1408USA017269

PATIENT
  Sex: Male
  Weight: 85 kg

DRUGS (2)
  1. TEMODAR [Suspect]
     Active Substance: TEMOZOLOMIDE
     Dosage: UNK, CYCLICAL
     Route: 048
     Dates: start: 2011, end: 2011
  2. TEMODAR [Suspect]
     Active Substance: TEMOZOLOMIDE
     Indication: BRAIN NEOPLASM
     Dosage: TOTAL DAILY DOSE: 400 MG ON DAY 1-5; Q 28 DAYS
     Route: 048
     Dates: start: 20140127, end: 20140306

REACTIONS (2)
  - Glioblastoma multiforme [Fatal]
  - Oedema [Unknown]

NARRATIVE: CASE EVENT DATE: 2011
